FAERS Safety Report 4917975-4 (Version None)
Quarter: 2006Q1

REPORT INFORMATION
  Report Type: 
  Country: None (occurrence: None)
  Receive Date: 20060221
  Receipt Date: 20051013
  Transmission Date: 20060701
  Serious: Yes (Hospitalization)
  Sender: FDA-Public Use
  Company Number: US-MERCK-0510USA07062

PATIENT
  Age: 75 Year
  Sex: Female

DRUGS (2)
  1. VIOXX [Suspect]
     Route: 048
  2. VIOXX [Suspect]
     Route: 048

REACTIONS (25)
  - ACUTE MYOCARDIAL INFARCTION [None]
  - ADRENAL MASS [None]
  - ADRENAL NEOPLASM [None]
  - ANGINA UNSTABLE [None]
  - ARTERIOSCLEROSIS [None]
  - ATRIOVENTRICULAR BLOCK COMPLETE [None]
  - BACK PAIN [None]
  - BLADDER CANCER [None]
  - BLOOD CHOLESTEROL INCREASED [None]
  - CARDIAC STRESS TEST ABNORMAL [None]
  - CHEST DISCOMFORT [None]
  - CHEST PAIN [None]
  - CORONARY ARTERY DISEASE [None]
  - CORONARY ARTERY OCCLUSION [None]
  - CORONARY ARTERY STENOSIS [None]
  - CYSTITIS NONINFECTIVE [None]
  - HAEMATURIA [None]
  - HEART RATE DECREASED [None]
  - HYPERLIPIDAEMIA [None]
  - HYPERTENSION [None]
  - INTRACARDIAC THROMBUS [None]
  - SICK SINUS SYNDROME [None]
  - SPINAL OSTEOARTHRITIS [None]
  - STENT OCCLUSION [None]
  - VENTRICULAR HYPOKINESIA [None]
